FAERS Safety Report 15971246 (Version 2)
Quarter: 2019Q1

REPORT INFORMATION
  Report Type: Spontaneous
  Country: ES (occurrence: ES)
  Receive Date: 20190215
  Receipt Date: 20190304
  Transmission Date: 20190418
  Serious: Yes (Hospitalization)
  Sender: FDA-Public Use
  Company Number: PHHY2019ES032172

PATIENT
  Age: 31 Year
  Sex: Male

DRUGS (12)
  1. MYCOPHENOLATE MOFETIL. [Suspect]
     Active Substance: MYCOPHENOLATE MOFETIL
     Indication: IMMUNOSUPPRESSANT DRUG THERAPY
  2. PREDNISONE. [Suspect]
     Active Substance: PREDNISONE
     Indication: IMMUNOSUPPRESSANT DRUG THERAPY
  3. PREDNISONE. [Suspect]
     Active Substance: PREDNISONE
     Indication: HEART TRANSPLANT
     Dosage: 15 MG, QD
     Route: 065
  4. CICLOSPORIN [Suspect]
     Active Substance: CYCLOSPORINE
     Indication: IMMUNOSUPPRESSANT DRUG THERAPY
  5. COTRIMOXAZOLE [Concomitant]
     Active Substance: SULFAMETHOXAZOLE\TRIMETHOPRIM
     Indication: ANTIBIOTIC THERAPY
     Dosage: 800/160 MG EVERY 48 HOURS.
     Route: 065
  6. ACICLOVIR [Suspect]
     Active Substance: ACYCLOVIR
     Dosage: 200 MG, TID
     Route: 065
  7. ACICLOVIR [Suspect]
     Active Substance: ACYCLOVIR
     Indication: ANTIBIOTIC THERAPY
     Dosage: 200 MG, BID
     Route: 065
  8. CICLOSPORIN [Suspect]
     Active Substance: CYCLOSPORINE
     Indication: IMMUNOSUPPRESSION
  9. ISONIAZID. [Suspect]
     Active Substance: ISONIAZID
     Indication: ANTIBIOTIC THERAPY
     Dosage: 300 MG, QD
     Route: 065
  10. CICLOSPORIN [Suspect]
     Active Substance: CYCLOSPORINE
     Indication: HEART TRANSPLANT
     Dosage: 250 MG, BID
     Route: 065
  11. MYCOPHENOLATE MOFETIL. [Suspect]
     Active Substance: MYCOPHENOLATE MOFETIL
     Indication: HEART TRANSPLANT
     Dosage: 500 MG, BID
     Route: 065
  12. NYSTATIN. [Suspect]
     Active Substance: NYSTATIN
     Indication: ANTIBIOTIC THERAPY
     Dosage: 1 RINSE, TID
     Route: 065

REACTIONS (9)
  - Endocarditis [Recovered/Resolved]
  - Bacteriuria [Unknown]
  - Rash erythematous [Unknown]
  - Asthenia [Unknown]
  - Splenomegaly [Unknown]
  - Headache [Unknown]
  - Rash maculo-papular [Unknown]
  - Chills [Unknown]
  - Pyrexia [Unknown]
